FAERS Safety Report 11043130 (Version 1)
Quarter: 2015Q2

REPORT INFORMATION
  Report Type: Spontaneous
  Country: US (occurrence: None)
  Receive Date: 20150416
  Receipt Date: 20150416
  Transmission Date: 20150821
  Serious: No
  Sender: FDA-Public Use
  Company Number: None

PATIENT
  Age: 58 Year
  Sex: Female

DRUGS (1)
  1. NITROFURANTOIN. [Suspect]
     Active Substance: NITROFURANTOIN
     Indication: URINARY TRACT INFECTION
     Dosage: 1
     Route: 048
     Dates: start: 20150408, end: 20150411

REACTIONS (10)
  - Nausea [None]
  - Muscular weakness [None]
  - Headache [None]
  - Musculoskeletal stiffness [None]
  - Alopecia [None]
  - Hyperhidrosis [None]
  - Asthma [None]
  - Vomiting [None]
  - Fatigue [None]
  - Hallucination [None]

NARRATIVE: CASE EVENT DATE: 20150409
